FAERS Safety Report 22058918 (Version 1)
Quarter: 2023Q1

REPORT INFORMATION
  Report Type: Other
  Country: CA (occurrence: CA)
  Receive Date: 20230303
  Receipt Date: 20230303
  Transmission Date: 20230417
  Serious: Yes (Hospitalization, Congenital Anomaly, Other)
  Sender: FDA-Public Use
  Company Number: CA-PFIZER INC-202300085762

PATIENT
  Weight: 1 kg

DRUGS (4)
  1. SPIRONOLACTONE [Suspect]
     Active Substance: SPIRONOLACTONE
     Indication: Foetal exposure during pregnancy
     Route: 064
  2. LASIX [Suspect]
     Active Substance: FUROSEMIDE
     Indication: Foetal exposure during pregnancy
     Route: 064
  3. LOSARTAN [Suspect]
     Active Substance: LOSARTAN
     Indication: Foetal exposure during pregnancy
     Route: 064
  4. PERINDOPRIL [Suspect]
     Active Substance: PERINDOPRIL
     Indication: Foetal exposure during pregnancy
     Route: 064

REACTIONS (10)
  - Maternal exposure during pregnancy [Unknown]
  - Gingival disorder [Unknown]
  - Hypocalvaria [Unknown]
  - Limb deformity [Unknown]
  - Low birth weight baby [Unknown]
  - Neonatal hypotension [Unknown]
  - Neonatal respiratory failure [Unknown]
  - Potter^s syndrome [Unknown]
  - Premature baby [Unknown]
  - Renal tubular dysfunction [Unknown]
